FAERS Safety Report 5014821-8 (Version None)
Quarter: 2006Q2

REPORT INFORMATION
  Report Type: 
  Country: None (occurrence: None)
  Receive Date: 20060412
  Receipt Date: 20050426
  Transmission Date: 20061013
  Serious: Yes (Hospitalization)
  Sender: FDA-Public Use
  Company Number: 2004-BP-11817BP

PATIENT
  Sex: Female

DRUGS (2)
  1. MOBIC [Suspect]
     Dosage: PO
     Route: 048
  2. TORADOL [Concomitant]

REACTIONS (1)
  - RENAL FAILURE [None]
